FAERS Safety Report 20079738 (Version 1)
Quarter: 2021Q4

REPORT INFORMATION
  Report Type: Spontaneous
  Country: US (occurrence: None)
  Receive Date: 20211117
  Receipt Date: 20211117
  Transmission Date: 20220303
  Serious: Yes (Other)
  Sender: FDA-Public Use
  Company Number: 2021A808214

PATIENT
  Sex: Male

DRUGS (8)
  1. LYNPARZA [Suspect]
     Active Substance: OLAPARIB
     Indication: Prostate cancer metastatic
     Route: 048
     Dates: start: 201901, end: 201910
  2. LUPRON [Concomitant]
     Active Substance: LEUPROLIDE ACETATE
     Route: 065
     Dates: start: 2011
  3. DOCETAXEL [Concomitant]
     Active Substance: DOCETAXEL
     Dosage: SIX CYCLES
     Route: 065
     Dates: start: 201408, end: 2015
  4. ZYTIGA [Concomitant]
     Active Substance: ABIRATERONE ACETATE
     Route: 065
     Dates: start: 201511, end: 2017
  5. ENZALEUTAMIDE [Concomitant]
     Route: 065
     Dates: start: 201706, end: 201803
  6. CABAZITAXEL [Concomitant]
     Active Substance: CABAZITAXEL
     Route: 065
     Dates: start: 201803, end: 2018
  7. XOFIGO [Concomitant]
     Active Substance: RADIUM RA-223 DICHLORIDE
     Dosage: SIX CYCLES
     Route: 065
     Dates: start: 20200115, end: 20200603
  8. TAXOTERE [Concomitant]
     Active Substance: DOCETAXEL
     Route: 065
     Dates: start: 202007, end: 20201104

REACTIONS (1)
  - Malignant neoplasm progression [Unknown]
